FAERS Safety Report 11175992 (Version 1)
Quarter: 2015Q2

REPORT INFORMATION
  Report Type: Spontaneous
  Country: US (occurrence: US)
  Receive Date: 20150609
  Receipt Date: 20150609
  Transmission Date: 20150821
  Serious: Yes (Hospitalization)
  Sender: FDA-Public Use
  Company Number: US-ELI_LILLY_AND_COMPANY-US201506002574

PATIENT
  Sex: Male
  Weight: 133.79 kg

DRUGS (5)
  1. HUMALOG [Suspect]
     Active Substance: INSULIN LISPRO
     Indication: TYPE 2 DIABETES MELLITUS
     Dosage: 5-10 U, QD
     Route: 065
  2. LANTUS [Concomitant]
     Active Substance: INSULIN GLARGINE
  3. TRAMADOL [Concomitant]
     Active Substance: TRAMADOL
  4. HUMALOG [Suspect]
     Active Substance: INSULIN LISPRO
     Indication: TYPE 2 DIABETES MELLITUS
     Dosage: 5-10 U, QD
     Route: 065
  5. METFORMIN [Concomitant]
     Active Substance: METFORMIN HYDROCHLORIDE

REACTIONS (10)
  - Diarrhoea [Unknown]
  - Overweight [Recovering/Resolving]
  - Intentional product use issue [Unknown]
  - Blood glucose increased [Unknown]
  - Bladder perforation [Unknown]
  - Spinal column stenosis [Unknown]
  - Infection [Unknown]
  - Asthenia [Unknown]
  - Neuropathy peripheral [Unknown]
  - Muscle atrophy [Unknown]
